FAERS Safety Report 24954056 (Version 1)
Quarter: 2025Q1

REPORT INFORMATION
  Report Type: Spontaneous
  Country: FR (occurrence: FR)
  Receive Date: 20250211
  Receipt Date: 20250211
  Transmission Date: 20250408
  Serious: Yes (Hospitalization)
  Sender: RANBAXY
  Company Number: FR-SUN PHARMACEUTICAL INDUSTRIES LTD-2025RR-492610

PATIENT
  Age: 34 Year
  Sex: Female
  Weight: 68 kg

DRUGS (12)
  1. MORPHINE [Suspect]
     Active Substance: MORPHINE
     Indication: Epidural anaesthesia
     Route: 008
     Dates: start: 20241203, end: 20241203
  2. ACETAMINOPHEN [Suspect]
     Active Substance: ACETAMINOPHEN
     Indication: Pain
     Route: 040
     Dates: start: 20241203
  3. NOREPINEPHRINE BITARTRATE [Suspect]
     Active Substance: NOREPINEPHRINE BITARTRATE
     Indication: Shock haemorrhagic
     Route: 040
     Dates: start: 20241203, end: 20241203
  4. TRANEXAMIC ACID [Suspect]
     Active Substance: TRANEXAMIC ACID
     Indication: Postpartum haemorrhage
     Route: 040
     Dates: start: 20241203, end: 20241203
  5. CLOTTAFACT [Suspect]
     Active Substance: FIBRINOGEN HUMAN
     Indication: Postpartum haemorrhage
     Route: 040
     Dates: start: 20241203, end: 20241203
  6. CEFAZOLIN SODIUM [Suspect]
     Active Substance: CEFAZOLIN SODIUM
     Indication: Antibiotic prophylaxis
     Route: 040
     Dates: start: 20241203, end: 20241203
  7. CARBETOCIN [Suspect]
     Active Substance: CARBETOCIN
     Indication: Haemorrhage prophylaxis
     Route: 040
     Dates: start: 20241203, end: 20241203
  8. KETOPROFEN [Suspect]
     Active Substance: KETOPROFEN
     Indication: Pain
     Route: 040
     Dates: start: 20241203, end: 20241203
  9. SULPROSTONE [Suspect]
     Active Substance: SULPROSTONE
     Indication: Postpartum haemorrhage
     Route: 040
     Dates: start: 20241203, end: 20241203
  10. CIMETIDINE [Suspect]
     Active Substance: CIMETIDINE
     Indication: Postpartum haemorrhage
     Route: 048
     Dates: start: 20241203, end: 20241203
  11. DROPERIDOL [Suspect]
     Active Substance: DROPERIDOL
     Indication: Procedural nausea
     Route: 040
     Dates: start: 20241203, end: 20241203
  12. LIDOCAINE [Suspect]
     Active Substance: LIDOCAINE
     Indication: Epidural anaesthesia
     Route: 008
     Dates: start: 20241203, end: 20241203

REACTIONS (1)
  - Renal cortical necrosis [Not Recovered/Not Resolved]

NARRATIVE: CASE EVENT DATE: 20241204
